FAERS Safety Report 18568077 (Version 1)
Quarter: 2020Q4

REPORT INFORMATION
  Report Type: Spontaneous
  Country: US (occurrence: US)
  Receive Date: 20201202
  Receipt Date: 20201202
  Transmission Date: 20210114
  Serious: No
  Sender: FDA-Public Use
  Company Number: US-TEVA-2020-US-1854820

PATIENT
  Age: 46 Year
  Sex: Female

DRUGS (1)
  1. DIAZEPAM. [Suspect]
     Active Substance: DIAZEPAM
     Dosage: WAS TAKING 1 TABLET OF 5 MG DIAZEPAM IN THE MORNING, HALF IN THE AFTERNOON, AND ONE AT BEDTIME
     Route: 065
     Dates: start: 1995

REACTIONS (3)
  - Thyroid function test abnormal [Unknown]
  - Wrong technique in product usage process [Unknown]
  - Withdrawal syndrome [Unknown]
